FAERS Safety Report 13547453 (Version 1)
Quarter: 2017Q2

REPORT INFORMATION
  Report Type: Report from Study
  Country: US (occurrence: US)
  Receive Date: 20170515
  Receipt Date: 20170515
  Transmission Date: 20170830
  Serious: Yes (Hospitalization)
  Sender: FDA-Public Use
  Company Number: US-VIFOR (INTERNATIONAL) INC.-VIT-2017-05226

PATIENT
  Sex: Male

DRUGS (15)
  1. PROCRIT [Concomitant]
     Active Substance: ERYTHROPOIETIN
  2. PREDNISONE. [Concomitant]
     Active Substance: PREDNISONE
  3. SODIUM CITRATE. [Concomitant]
     Active Substance: SODIUM CITRATE
  4. TAMSULOSIN [Concomitant]
     Active Substance: TAMSULOSIN
  5. ADVAIR DISKU [Concomitant]
  6. ACETYLSALICYLIC ACID [Concomitant]
     Active Substance: ASPIRIN
  7. SALBUTAMOL [Concomitant]
     Active Substance: ALBUTEROL
  8. FAMOTIDINE. [Concomitant]
     Active Substance: FAMOTIDINE
  9. ATORVASTATIN [Concomitant]
     Active Substance: ATORVASTATIN
  10. AMLODIPINE [Concomitant]
     Active Substance: AMLODIPINE BESYLATE
  11. VELTASSA [Suspect]
     Active Substance: PATIROMER
     Indication: HYPERKALAEMIA
     Route: 048
     Dates: start: 20160715
  12. CARVEDILOL. [Concomitant]
     Active Substance: CARVEDILOL
  13. CHLORTALIDONE [Concomitant]
     Active Substance: CHLORTHALIDONE
  14. FINASTERIDE. [Concomitant]
     Active Substance: FINASTERIDE
  15. COLECALCIFEROL [Concomitant]
     Active Substance: CHOLECALCIFEROL

REACTIONS (2)
  - Pleural effusion [Not Recovered/Not Resolved]
  - Drug dose omission [Unknown]
